FAERS Safety Report 4424106-6 (Version None)
Quarter: 2004Q3

REPORT INFORMATION
  Report Type: 
  Country: None (occurrence: None)
  Receive Date: 20040809
  Receipt Date: 20040803
  Transmission Date: 20050211
  Serious: Yes (Hospitalization)
  Sender: FDA-Public Use
  Company Number: 2004-06-0043

PATIENT
  Age: 60 Year
  Sex: Male

DRUGS (5)
  1. REBETOL [Suspect]
     Indication: HEPATITIS C
     Dosage: 800 MG ORAL
     Route: 048
     Dates: start: 20040129, end: 20040521
  2. INTRON A [Suspect]
     Indication: HEPATITIS C
     Dosage: SEE IMAGE
     Route: 030
     Dates: start: 20040129, end: 20040211
  3. INTRON A [Suspect]
     Indication: HEPATITIS C
     Dosage: SEE IMAGE
     Route: 030
     Dates: start: 20040213, end: 20040521
  4. AMANTADINE HYDROCHLORIDE [Suspect]
     Indication: HEPATITIS C
     Dosage: 150 MG ORAL
     Route: 048
     Dates: start: 20040115, end: 20040521
  5. FERON INJECTABLE [Suspect]
     Indication: HEPATITIS C
     Dosage: 6 MU INTRAVENOUS
     Route: 042
     Dates: start: 20040115, end: 20040128

REACTIONS (1)
  - IDIOPATHIC THROMBOCYTOPENIC PURPURA [None]
